FAERS Safety Report 8362792-9 (Version None)
Quarter: 2012Q2

REPORT INFORMATION
  Report Type: 
  Country: None (occurrence: None)
  Receive Date: 20120516
  Receipt Date: 20120509
  Transmission Date: 20120825
  Serious: Yes (Death)
  Sender: FDA-Public Use
  Company Number: PHHY2012UY041143

PATIENT
  Age: 5 Year
  Sex: Male

DRUGS (13)
  1. METHYLPREDNISOLONE [Concomitant]
  2. CYCLOSPORINE [Suspect]
     Indication: PROPHYLAXIS AGAINST GRAFT VERSUS HOST DISEASE
     Dosage: 1.5 MG/KG, BID
  3. THIOTEPA [Concomitant]
     Dosage: 5 MG / KG EVERY 12 H ON DAY -4
  4. RITUXIMAB [Concomitant]
     Dosage: 375 MG/M2, ON DAY -1
  5. NEUPOGEN [Concomitant]
     Dosage: 10 UG/KG,DAILY
  6. ORTHOCLONE OKT3 [Concomitant]
  7. FLUCONAZOLE [Concomitant]
  8. FLUDARABINE PHOSPHATE [Concomitant]
     Dosage: 30 MG/M2 FROM DAYS -9 TO-5,
  9. MELPHALAN HYDROCHLORIDE [Concomitant]
     Dosage: 70 MG/M2, ONCE DAILY
  10. ACYCLOVIR [Concomitant]
  11. ANTI-THYMOCYTE GLOBULIN EQUINE NOS [Concomitant]
  12. COTRIM [Concomitant]
  13. IRRADIATION [Concomitant]

REACTIONS (1)
  - TRANSPLANT REJECTION [None]
